FAERS Safety Report 6644722-0 (Version None)
Quarter: 2010Q1

REPORT INFORMATION
  Report Type: 
  Country: None (occurrence: None)
  Receive Date: 20100305
  Receipt Date: 20100215
  Transmission Date: 20100710
  Serious: No
  Sender: FDA-Public Use
  Company Number: 2010-00257

PATIENT
  Age: 52 Year
  Sex: Male
  Weight: 81.6475 kg

DRUGS (2)
  1. ZICAM COLD REMEDY GEL SWABS [Suspect]
     Dosage: SPORADIC; SUMMER 2009
     Dates: start: 20081201, end: 20090101
  2. ZICAM COLD REMEDY GEL SWABS [Suspect]
     Dosage: SPORADIC;  SUMMER 2009
     Dates: start: 20081201, end: 20090101

REACTIONS (1)
  - ANOSMIA [None]
